FAERS Safety Report 20949998 (Version 2)
Quarter: 2022Q3

REPORT INFORMATION
  Report Type: Report from Study
  Country: US (occurrence: US)
  Receive Date: 20220613
  Receipt Date: 20220708
  Transmission Date: 20221027
  Serious: Yes (Hospitalization, Other)
  Sender: FDA-Public Use
  Company Number: US-TAKEDA-2022TUS021575

PATIENT
  Age: 63 Year
  Sex: Male

DRUGS (3)
  1. MARIBAVIR [Suspect]
     Active Substance: MARIBAVIR
     Indication: Cytomegalovirus infection
     Dosage: 400 MILLIGRAM, BID
     Route: 048
     Dates: start: 20220325
  2. MARIBAVIR [Suspect]
     Active Substance: MARIBAVIR
     Dosage: 200 DOSAGE FORM, BID
     Route: 048
     Dates: start: 20220325, end: 20220523
  3. FOSCARNET [Suspect]
     Active Substance: FOSCARNET
     Indication: Cytomegalovirus infection
     Dosage: UNK
     Route: 065

REACTIONS (4)
  - Viral load increased [Unknown]
  - Renal failure [Recovered/Resolved]
  - Therapy non-responder [Unknown]
  - Taste disorder [Unknown]

NARRATIVE: CASE EVENT DATE: 20220325
